FAERS Safety Report 6535821-2 (Version None)
Quarter: 2009Q4

REPORT INFORMATION
  Report Type: 
  Country: None (occurrence: None)
  Receive Date: 20091229
  Receipt Date: 20090922
  Transmission Date: 20100525
  Serious: Yes (Hospitalization)
  Sender: FDA-Public Use
  Company Number: 1000007579

PATIENT
  Age: 43 Year
  Sex: Male
  Weight: 155.5838 kg

DRUGS (21)
  1. BYSTOLIC [Suspect]
     Indication: HYPERTENSION
     Dosage: 5 MG (5 MG, 1 IN 1 D), ORAL 10 MG (10 MG, 1 IN 1 D), ORAL
     Route: 048
     Dates: start: 20081119, end: 20081201
  2. BYSTOLIC [Suspect]
     Indication: HYPERTENSION
     Dosage: 5 MG (5 MG, 1 IN 1 D), ORAL 10 MG (10 MG, 1 IN 1 D), ORAL
     Route: 048
     Dates: start: 20081202, end: 20090526
  3. BYSTOLIC [Suspect]
     Indication: HYPERTENSION
     Dosage: 5 MG (5 MG, 1 IN 1 D), ORAL 10 MG (10 MG, 1 IN 1 D), ORAL
     Route: 048
     Dates: start: 20090528, end: 20090604
  4. BYSTOLIC [Suspect]
     Indication: HYPERTENSION
     Dosage: 10 MG (10 MG, 1 IN 1 D), ORAL
     Route: 048
     Dates: start: 20090605, end: 20090616
  5. GLUCOPHAGE [Concomitant]
  6. NEURONTIN [Concomitant]
  7. CYMBALTA [Concomitant]
  8. XANAX [Concomitant]
  9. FENTANYL-100 [Concomitant]
  10. CLOBETASOL PROPIONATE [Concomitant]
  11. AMBIEN CR [Concomitant]
  12. ZAROXOLYN [Concomitant]
  13. MIDRIN [Concomitant]
  14. SOMA [Concomitant]
  15. TARKA [Concomitant]
  16. VICODIN [Concomitant]
  17. ULTRAM [Concomitant]
  18. DILAUDID [Concomitant]
  19. AMBIEN [Concomitant]
  20. LOTREL [Concomitant]
  21. MOBIC [Concomitant]

REACTIONS (10)
  - BRADYCARDIA [None]
  - CELLULITIS [None]
  - DEPRESSION [None]
  - ERYTHEMA [None]
  - FALL [None]
  - HEADACHE [None]
  - LYMPHADENITIS [None]
  - ONYCHALGIA [None]
  - STAPHYLOCOCCAL INFECTION [None]
  - SYNCOPE [None]
